FAERS Safety Report 5505277-7 (Version None)
Quarter: 2007Q4

REPORT INFORMATION
  Report Type: 
  Country: None (occurrence: None)
  Receive Date: 20071102
  Receipt Date: 20071025
  Transmission Date: 20080405
  Serious: Yes (Other)
  Sender: FDA-Public Use
  Company Number: US-JNJFOC-20071007254

PATIENT
  Sex: Male

DRUGS (9)
  1. LEVAQUIN [Suspect]
     Indication: SINUSITIS
     Route: 048
  2. LOSARTAN POTASSIUM [Concomitant]
     Indication: HYPOTENSION
     Route: 048
  3. PLAVIX [Concomitant]
     Indication: THROMBOSIS
     Route: 048
  4. ACETYLSALICYLIC ACID SRT [Concomitant]
     Indication: THROMBOSIS
     Route: 048
  5. METHYLPREDNISOLONE [Concomitant]
     Indication: SINUSITIS
     Route: 048
  6. AMIODARONE HCL [Concomitant]
     Indication: ARRHYTHMIA
     Route: 048
  7. NITROGLYCERIN [Concomitant]
     Indication: ANGINA PECTORIS
     Route: 062
  8. SIMVASTATIN [Concomitant]
     Indication: HYPERCHOLESTEROLAEMIA
     Route: 048
  9. LANSOPRAZOLE [Concomitant]
     Indication: ULCER
     Route: 048

REACTIONS (1)
  - ATRIAL FIBRILLATION [None]
